FAERS Safety Report 14470907 (Version 1)
Quarter: 2018Q1

REPORT INFORMATION
  Report Type: Spontaneous
  Country: US (occurrence: US)
  Receive Date: 20180130
  Receipt Date: 20180130
  Transmission Date: 20180509
  Serious: Yes (Hospitalization)
  Sender: FDA-Public Use
  Company Number: None

PATIENT
  Age: 56 Year
  Sex: Female

DRUGS (4)
  1. BUMETANIDE. [Concomitant]
     Active Substance: BUMETANIDE
  2. LETAIRIS [Concomitant]
     Active Substance: AMBRISENTAN
  3. ADCIRCA [Suspect]
     Active Substance: TADALAFIL
     Indication: ESSENTIAL HYPERTENSION
     Route: 048
     Dates: start: 20171025
  4. FERROUS SULF [Concomitant]
     Active Substance: FERROUS SULFATE

REACTIONS (3)
  - Fluid retention [None]
  - Underdose [None]
  - Drug dose omission [None]

NARRATIVE: CASE EVENT DATE: 20180128
